FAERS Safety Report 5105738-9 (Version None)
Quarter: 2006Q3

REPORT INFORMATION
  Report Type: 
  Country: None (occurrence: None)
  Receive Date: 20060915
  Receipt Date: 20060728
  Transmission Date: 20061208
  Serious: Yes (Disabling)
  Sender: FDA-Public Use
  Company Number: 2006AC01514

PATIENT
  Age: 18 Year
  Sex: Female

DRUGS (1)
  1. SEROQUEL [Suspect]
     Route: 048
     Dates: start: 20060219

REACTIONS (3)
  - ABNORMAL BEHAVIOUR [None]
  - ANOSMIA [None]
  - APHASIA [None]
